FAERS Safety Report 24712220 (Version 2)
Quarter: 2024Q4

REPORT INFORMATION
  Report Type: Spontaneous
  Country: GB (occurrence: GB)
  Receive Date: 20241209
  Receipt Date: 20241219
  Transmission Date: 20250115
  Serious: Yes (Other)
  Sender: SANDOZ
  Company Number: GB-MHRA-TPP41033913C10929852YC1733217674358

PATIENT
  Age: 70 Year
  Sex: Male
  Weight: 100 kg

DRUGS (12)
  1. OMEPRAZOLE [Suspect]
     Active Substance: OMEPRAZOLE
     Indication: Product used for unknown indication
     Dosage: 20 MG, QD
     Route: 048
     Dates: start: 20241118, end: 20241128
  2. ATORVASTATIN [Concomitant]
     Active Substance: ATORVASTATIN
     Indication: Blood cholesterol
     Dosage: TAKE ONE DAILY FOR CHOLESTEROL
     Route: 065
     Dates: start: 20240103
  3. AMOXICILLIN\CLAVULANATE POTASSIUM [Concomitant]
     Active Substance: AMOXICILLIN\CLAVULANATE POTASSIUM
     Indication: Product used for unknown indication
     Dosage: 1 DF, Q8H (THREE TIMES A DAY)
     Route: 065
     Dates: start: 20241003, end: 20241010
  4. POLYETHYLENE GLYCOL 3350\POTASSIUM CHLORIDE\SODIUM BICARBONATE\SODIUM [Concomitant]
     Active Substance: POLYETHYLENE GLYCOL 3350\POTASSIUM CHLORIDE\SODIUM BICARBONATE\SODIUM CHLORIDE
     Indication: Product used for unknown indication
     Dosage: TAKE THE CONTENTS OF ONE SACHET UP TO THREE TIMES A DAY AS NEEDED F...
     Route: 065
     Dates: start: 20240703
  5. CYCLIZINE [Concomitant]
     Active Substance: CYCLIZINE
     Indication: Nausea
     Dosage: PLEASE TAKE ONE EVERY 6-8 HOURS FOR NAUSEA
     Route: 065
     Dates: start: 20241104
  6. FAMOTIDINE [Concomitant]
     Active Substance: FAMOTIDINE
     Indication: Product used for unknown indication
     Dosage: 1 DF, QD
     Route: 065
     Dates: start: 20241128
  7. FENBID [Concomitant]
     Indication: Ill-defined disorder
     Dosage: APPLY TO THE AFFECTED AREA(S) THREE TIMES A DAY...
     Route: 065
     Dates: start: 20241118
  8. BETAMETHASONE VALERATE\FUSIDIC ACID [Concomitant]
     Active Substance: BETAMETHASONE VALERATE\FUSIDIC ACID
     Indication: Product used for unknown indication
     Dosage: APPLY TWICE DAILY
     Route: 065
     Dates: start: 20241104, end: 20241105
  9. LEVOTHYROXINE [Concomitant]
     Active Substance: LEVOTHYROXINE
     Indication: Product used for unknown indication
     Dosage: 175 UG, QD
     Route: 065
     Dates: start: 20231023
  10. ACETAMINOPHEN [Concomitant]
     Active Substance: ACETAMINOPHEN
     Indication: Pain
     Dosage: TAKE TWO 4 TIMES/DAY WHEN REQUIRED FOR PAIN
     Route: 065
     Dates: start: 20241128, end: 20241202
  11. SEA WATER [Concomitant]
     Active Substance: SEA WATER
     Indication: Product used for unknown indication
     Dosage: AS DIRECTED TO REGULARLY CLEAN NASAL PASSAGE AF...
     Route: 045
     Dates: start: 20231023
  12. ZOPICLONE [Concomitant]
     Active Substance: ZOPICLONE
     Indication: Product used for unknown indication
     Dosage: TAKE ONE AT NIGHT (CAN HAVE SCRIPT EVERY 3 MONTHS)
     Route: 065
     Dates: start: 20240620

REACTIONS (1)
  - Joint swelling [Recovering/Resolving]

NARRATIVE: CASE EVENT DATE: 20241128
